FAERS Safety Report 8410395-X (Version None)
Quarter: 2012Q2

REPORT INFORMATION
  Report Type: 
  Country: None (occurrence: None)
  Receive Date: 20120605
  Receipt Date: 20120601
  Transmission Date: 20120825
  Serious: Yes (Other)
  Sender: FDA-Public Use
  Company Number: US-AMGEN-USASP2012034514

PATIENT
  Sex: Female

DRUGS (1)
  1. ENBREL [Suspect]
     Indication: PSORIATIC ARTHROPATHY
     Dosage: UNK
     Dates: start: 20021202

REACTIONS (5)
  - FALL [None]
  - SUICIDAL IDEATION [None]
  - PSORIATIC ARTHROPATHY [None]
  - MOBILITY DECREASED [None]
  - MOVEMENT DISORDER [None]
